FAERS Safety Report 16809590 (Version 1)
Quarter: 2019Q4

REPORT INFORMATION
  Report Type: Spontaneous
  Country: US (occurrence: US)
  Receive Date: 20190915
  Receipt Date: 20190915
  Transmission Date: 20200122
  Serious: Yes (Hospitalization)
  Sender: FDA-Public Use
  Company Number: None

PATIENT
  Age: 31 Year
  Sex: Male
  Weight: 73.2 kg

DRUGS (1)
  1. CLINDAMYCIN. [Suspect]
     Active Substance: CLINDAMYCIN
     Indication: ANTIBIOTIC PROPHYLAXIS
     Dosage: 600 MG ORAL 1 HOUR PRIOR APPT?
     Route: 048
     Dates: start: 20190708, end: 20190708

REACTIONS (12)
  - Abdominal pain [None]
  - Headache [None]
  - Hypotension [None]
  - Tachycardia [None]
  - Diarrhoea [None]
  - Chills [None]
  - Pyrexia [None]
  - Dizziness [None]
  - Oropharyngeal pain [None]
  - Vomiting [None]
  - Dyspnoea [None]
  - Faeces discoloured [None]

NARRATIVE: CASE EVENT DATE: 20190813
